FAERS Safety Report 10634006 (Version 1)
Quarter: 2014Q4

REPORT INFORMATION
  Report Type: Spontaneous
  Country: US (occurrence: None)
  Receive Date: 20141203
  Receipt Date: 20141203
  Transmission Date: 20150529
  Serious: Yes (Other)
  Sender: FDA-Public Use
  Company Number: None

PATIENT
  Age: 16 Year
  Sex: Female
  Weight: 55.8 kg

DRUGS (1)
  1. TECHNETIUM TC 99M MEDRONATE [Suspect]
     Active Substance: MEDRONIC ACID
     Indication: BONE SCAN
     Route: 042
     Dates: start: 20140930

REACTIONS (6)
  - Chills [None]
  - Hypoaesthesia [None]
  - Eye pain [None]
  - Vomiting [None]
  - Eye oedema [None]
  - Visual impairment [None]

NARRATIVE: CASE EVENT DATE: 20140930
